FAERS Safety Report 6907409-2 (Version None)
Quarter: 2010Q3

REPORT INFORMATION
  Report Type: 
  Country: None (occurrence: None)
  Receive Date: 20100805
  Receipt Date: 20100722
  Transmission Date: 20110219
  Serious: Yes (Hospitalization)
  Sender: FDA-Public Use
  Company Number: FR-JNJFOC-20100606272

PATIENT
  Age: 69 Year
  Sex: Female

DRUGS (7)
  1. IXPRIM [Suspect]
     Indication: BACK PAIN
     Route: 048
  2. MYOLASTAN [Suspect]
     Indication: BACK PAIN
     Route: 048
  3. SOLU-PRED [Suspect]
     Indication: BACK PAIN
     Route: 048
  4. BI-PROFENID [Suspect]
     Indication: BACK PAIN
     Route: 065
  5. PANFUREX [Suspect]
     Indication: DIARRHOEA
     Route: 048
  6. UVEDOSE [Concomitant]
  7. ATACAND [Concomitant]

REACTIONS (17)
  - BLOOD PRESSURE DECREASED [None]
  - BLOOD PRESSURE DIASTOLIC DECREASED [None]
  - BLOOD SODIUM DECREASED [None]
  - DECREASED APPETITE [None]
  - DIALYSIS [None]
  - DIARRHOEA [None]
  - DRY SKIN [None]
  - HEART RATE DECREASED [None]
  - ISCHAEMIC STROKE [None]
  - NERVOUS SYSTEM DISORDER [None]
  - PNEUMONIA ASPIRATION [None]
  - RENAL FAILURE ACUTE [None]
  - SEPTIC SHOCK [None]
  - STAPHYLOCOCCAL SEPSIS [None]
  - TUBULOINTERSTITIAL NEPHRITIS [None]
  - URINARY TRACT INFECTION PSEUDOMONAL [None]
  - WHEEZING [None]
